FAERS Safety Report 21572125 (Version 1)
Quarter: 2022Q4

REPORT INFORMATION
  Report Type: Spontaneous
  Country: US (occurrence: US)
  Receive Date: 20221109
  Receipt Date: 20221109
  Transmission Date: 20230112
  Serious: Yes (Death, Other)
  Sender: FDA-Public Use
  Company Number: US-MALLINCKRODT-T202205790

PATIENT
  Sex: Female

DRUGS (1)
  1. UVADEX [Suspect]
     Active Substance: METHOXSALEN
     Indication: Acute graft versus host disease in liver
     Dosage: UNK, EXTRACORPOREAL
     Route: 050

REACTIONS (6)
  - Acute graft versus host disease [Fatal]
  - Condition aggravated [Fatal]
  - Hepatic failure [Fatal]
  - Device related infection [Recovering/Resolving]
  - Bacterial sepsis [Recovering/Resolving]
  - Product use in unapproved indication [Unknown]
